FAERS Safety Report 7119138-3 (Version None)
Quarter: 2010Q4

REPORT INFORMATION
  Report Type: 
  Country: None (occurrence: None)
  Receive Date: 20101123
  Receipt Date: 20100201
  Transmission Date: 20110411
  Serious: No
  Sender: FDA-Public Use
  Company Number: US-MYLANLABS-2010S1001764

PATIENT
  Sex: Female

DRUGS (2)
  1. AMLODIPINE BESYLATE [Suspect]
  2. HYDROCHLOROTHIAZIDE [Suspect]

REACTIONS (3)
  - DISORIENTATION [None]
  - PALPITATIONS [None]
  - PHARYNGEAL OEDEMA [None]
